FAERS Safety Report 16368105 (Version 2)
Quarter: 2019Q2

REPORT INFORMATION
  Report Type: Spontaneous
  Country: JP (occurrence: JP)
  Receive Date: 20190529
  Receipt Date: 20190617
  Transmission Date: 20190711
  Serious: Yes (Hospitalization, Other)
  Sender: FDA-Public Use
  Company Number: JP-PFIZER INC-2019218849

PATIENT
  Age: 86 Year
  Sex: Female

DRUGS (8)
  1. SALOBEL [Concomitant]
     Active Substance: ALLOPURINOL
     Dosage: 50 MG, 1X/DAY (ONCE DAILY IN THE MORNING)
     Route: 048
  2. LOXOPROFEN NA [Concomitant]
     Active Substance: LOXOPROFEN SODIUM
     Indication: BACK PAIN
     Dosage: 60 MG, 2X/DAY
     Route: 048
     Dates: start: 20190118
  3. SODIUM RISEDRONATE [Concomitant]
     Active Substance: RISEDRONATE SODIUM
     Indication: OSTEOPOROSIS
     Dosage: 17.5 MG, WEEKLY
     Route: 048
     Dates: start: 201305
  4. LYRICA [Suspect]
     Active Substance: PREGABALIN
     Indication: BACK PAIN
     Dosage: 50 MG, 1X/DAY (IN THE EVENING)
     Route: 048
     Dates: start: 20190110, end: 2019
  5. DIPYRIDAMOLE. [Concomitant]
     Active Substance: DIPYRIDAMOLE
     Dosage: 25 MG, 3X/DAY
     Route: 048
  6. SPIRONOLACTONE. [Concomitant]
     Active Substance: SPIRONOLACTONE
     Dosage: 2.5 MG, 1X/DAY (ONCE DAILY IN THE MORNING)
     Route: 048
  7. ALFACALCIDOL [Concomitant]
     Active Substance: ALFACALCIDOL
     Indication: OSTEOPOROSIS
     Dosage: 0.5 UG, 1X/DAY ( ONCE DAILY IN THE EVENING)
     Route: 048
     Dates: start: 201305
  8. FUROSEMIDE. [Concomitant]
     Active Substance: FUROSEMIDE
     Dosage: 10 MG, 1X/DAY
     Route: 048

REACTIONS (7)
  - Fall [Unknown]
  - Renal impairment [Recovering/Resolving]
  - Dyspnoea [Unknown]
  - Hepatic function abnormal [Recovered/Resolved]
  - Wheezing [Unknown]
  - Generalised oedema [Unknown]
  - Spinal compression fracture [Recovered/Resolved]

NARRATIVE: CASE EVENT DATE: 2019
